FAERS Safety Report 14490780 (Version 6)
Quarter: 2018Q3

REPORT INFORMATION
  Report Type: Spontaneous
  Country: FR (occurrence: FR)
  Receive Date: 20180206
  Receipt Date: 20180818
  Transmission Date: 20181010
  Serious: Yes (Hospitalization, Other)
  Sender: FDA-Public Use
  Company Number: FR-AUROBINDO-AUR-APL-2018-004544

PATIENT
  Age: 34 Year
  Sex: Female

DRUGS (20)
  1. PARACETAMOL TABLET [Suspect]
     Active Substance: ACETAMINOPHEN
     Indication: ANALGESIC THERAPY
     Dosage: 4 G, DAILY
     Route: 048
  2. KETOPROFEN TABLET [Suspect]
     Active Substance: KETOPROFEN
     Indication: ANALGESIC THERAPY
     Dosage: 50 MG, QID
     Route: 048
  3. ADRENALIN                          /00003901/ [Suspect]
     Active Substance: EPINEPHRINE
     Indication: ANAESTHESIA
     Dosage: UNK
     Route: 008
  4. MORPHINE [Suspect]
     Active Substance: MORPHINE
     Indication: ANALGESIC THERAPY
     Dosage: 8 MG, FOUR TIMES/DAY
     Route: 008
  5. ROPIVACAINE [Suspect]
     Active Substance: ROPIVACAINE
     Dosage: 20 MILLILITER, TOTAL
     Route: 008
  6. NEFOPAM [Suspect]
     Active Substance: NEFOPAM
     Indication: ANALGESIC THERAPY
     Dosage: 160 MG, DAILY
     Route: 048
  7. EPINEPHRINE. [Suspect]
     Active Substance: EPINEPHRINE
     Dosage: 15 MILLILITER, TOTAL
     Route: 008
  8. NEFOPAM [Suspect]
     Active Substance: NEFOPAM
     Dosage: 40 MG, QID
     Route: 048
  9. MORPHINE [Suspect]
     Active Substance: MORPHINE
     Dosage: 2 MG, QID
     Route: 008
  10. ROPIVACAINE [Suspect]
     Active Substance: ROPIVACAINE
     Dosage: 15 MILLILITER
     Route: 065
  11. EPINEPHRINE. [Suspect]
     Active Substance: EPINEPHRINE
     Indication: ANAESTHESIA
     Dosage: 2 MILLIGRAM
     Route: 008
  12. ENOXAPARIN [Suspect]
     Active Substance: ENOXAPARIN
     Indication: THROMBOSIS PROPHYLAXIS
     Dosage: 40 MG/24HR
     Route: 058
  13. SUFENTANIL [Suspect]
     Active Substance: SUFENTANIL
     Indication: ANAESTHESIA
     Dosage: 5 ?G, UNK
     Route: 008
  14. SUFENTANIL [Suspect]
     Active Substance: SUFENTANIL
     Indication: EPIDURAL ANALGESIA
     Dosage: 5 UG,TOTAL ; IN TOTAL
     Route: 008
  15. NEFOPAM [Suspect]
     Active Substance: NEFOPAM
     Dosage: 40 MG, QID
  16. LIDOCAINE. [Suspect]
     Active Substance: LIDOCAINE
     Indication: ANAESTHESIA
     Dosage: 300 MG, TOTAL
     Route: 008
  17. LIDOCAINE. [Suspect]
     Active Substance: LIDOCAINE
     Indication: EPIDURAL ANALGESIA
     Dosage: 15 ML,UNK
     Route: 008
  18. ROPIVACAINE [Suspect]
     Active Substance: ROPIVACAINE
     Indication: ANAESTHESIA
     Dosage: 20 MG, UNK
     Route: 008
  19. ROPIVACAINE [Suspect]
     Active Substance: ROPIVACAINE
     Indication: EPIDURAL ANALGESIA
     Dosage: 20 MG, TOTAL
     Route: 008
  20. ACETYLSALICYLIC ACID [Suspect]
     Active Substance: ASPIRIN
     Indication: PRODUCT USED FOR UNKNOWN INDICATION
     Dosage: UNK
     Route: 065

REACTIONS (12)
  - Paraesthesia [Recovered/Resolved]
  - Gait disturbance [Recovered/Resolved]
  - Maternal exposure during pregnancy [Unknown]
  - Nervous system disorder [Recovering/Resolving]
  - Epidural analgesia [Unknown]
  - Neuropathy peripheral [Recovered/Resolved]
  - Peripheral nerve injury [Recovered/Resolved]
  - Epistaxis [Unknown]
  - Product use issue [Unknown]
  - Spinal epidural haemorrhage [Recovered/Resolved]
  - Live birth [Unknown]
  - Foetal heart rate abnormal [Recovering/Resolving]
